FAERS Safety Report 10173022 (Version 1)
Quarter: 2014Q2

REPORT INFORMATION
  Report Type: Report from Study
  Country: BR (occurrence: BR)
  Receive Date: 20140515
  Receipt Date: 20140515
  Transmission Date: 20141212
  Serious: Yes (Other)
  Sender: FDA-Public Use
  Company Number: PHHY2014BR056879

PATIENT
  Sex: Female
  Weight: 73 kg

DRUGS (1)
  1. ACLASTA [Suspect]
     Indication: OSTEOPOROSIS
     Dosage: 5 MG (ONE APPLICATION EVERY YEAR)
     Route: 042
     Dates: start: 201305

REACTIONS (1)
  - Bone cancer [Recovering/Resolving]
